FAERS Safety Report 16942947 (Version 1)
Quarter: 2019Q4

REPORT INFORMATION
  Report Type: Spontaneous
  Country: NL (occurrence: NL)
  Receive Date: 20191021
  Receipt Date: 20191021
  Transmission Date: 20200122
  Serious: Yes (Hospitalization)
  Sender: FDA-Public Use
  Company Number: NL-ALLERGAN-1941962US

PATIENT
  Sex: Male
  Weight: 79 kg

DRUGS (5)
  1. DUTASTERIDE. [Suspect]
     Active Substance: DUTASTERIDE
     Indication: LOWER URINARY TRACT SYMPTOMS
     Dosage: 0.5 MG, QD
     Route: 048
     Dates: start: 20150618
  2. LISINOPRIL. [Suspect]
     Active Substance: LISINOPRIL
     Indication: CARDIAC FAILURE
     Dosage: 50 MG, QD
     Dates: start: 20150904, end: 20150920
  3. FUROSEMIDE. [Concomitant]
     Active Substance: FUROSEMIDE
     Indication: CARDIAC FAILURE
     Dosage: 20 MG, QD
     Dates: start: 20150311, end: 20150920
  4. SILODOSIN - BP [Suspect]
     Active Substance: SILODOSIN
     Indication: LOWER URINARY TRACT SYMPTOMS
     Dosage: 4 MG, QD
     Route: 048
     Dates: start: 20150618
  5. ACENOCOUMAROL [Concomitant]
     Active Substance: ACENOCOUMAROL
     Dosage: UNK
     Dates: start: 20081117

REACTIONS (2)
  - Orthostatic hypotension [Recovered/Resolved]
  - Craniocerebral injury [Recovered/Resolved]

NARRATIVE: CASE EVENT DATE: 20150920
